FAERS Safety Report 4479790-8 (Version None)
Quarter: 2004Q3

REPORT INFORMATION
  Report Type: 
  Country: None (occurrence: None)
  Receive Date: 20040923
  Receipt Date: 20040726
  Transmission Date: 20050211
  Serious: No
  Sender: FDA-Public Use
  Company Number: USA040362935

PATIENT
  Age: 74 Year
  Sex: Female
  Weight: 61 kg

DRUGS (10)
  1. FORTEO [Suspect]
     Indication: OSTEOPOROSIS
     Dosage: 20 UG DAY
     Dates: start: 20040311, end: 20040401
  2. LESCOL (FLOUVASTATIN SODIUM) [Concomitant]
  3. MOBIC [Concomitant]
  4. TARKA [Concomitant]
  5. CENTRUM [Concomitant]
  6. ASPIRIN [Concomitant]
  7. MULTIVITAMIN [Concomitant]
  8. BEMECOR (METILDIGOXIN) [Concomitant]
  9. ARICEPT [Concomitant]
  10. ANEMAGEN [Concomitant]

REACTIONS (6)
  - ARTHRALGIA [None]
  - BACK PAIN [None]
  - FATIGUE [None]
  - INJECTION SITE PAIN [None]
  - PAIN EXACERBATED [None]
  - PAIN IN EXTREMITY [None]
